FAERS Safety Report 7406051-7 (Version None)
Quarter: 2011Q2

REPORT INFORMATION
  Report Type: 
  Country: None (occurrence: None)
  Receive Date: 20110411
  Receipt Date: 20110404
  Transmission Date: 20111010
  Serious: Yes (Other)
  Sender: FDA-Public Use
  Company Number: B0699551A

PATIENT
  Sex: Female

DRUGS (1)
  1. PAXIL [Suspect]
     Indication: DEPRESSION
     Dosage: 300MG PER DAY
     Route: 048

REACTIONS (5)
  - FEELING GUILTY [None]
  - SUICIDE ATTEMPT [None]
  - ROAD TRAFFIC ACCIDENT [None]
  - PANIC REACTION [None]
  - OVERDOSE [None]
